FAERS Safety Report 9690705 (Version 2)
Quarter: 2013Q4

REPORT INFORMATION
  Report Type: Spontaneous
  Country: GB (occurrence: GB)
  Receive Date: 20131115
  Receipt Date: 20131115
  Transmission Date: 20140711
  Serious: Yes (Other)
  Sender: FDA-Public Use
  Company Number: GB-WATSON-2013-21068

PATIENT
  Age: 69 Year
  Sex: Female
  Weight: 62 kg

DRUGS (3)
  1. TRIMETHOPRIM (UNKNOWN) [Suspect]
     Indication: URINARY TRACT INFECTION
     Dosage: 200 MG, BID
     Route: 048
     Dates: start: 20130125, end: 20130128
  2. IBUPROFEN [Concomitant]
     Indication: PRODUCT USED FOR UNKNOWN INDICATION
     Dosage: UNK
     Route: 065
  3. OMEPRAZOLE [Concomitant]
     Indication: PRODUCT USED FOR UNKNOWN INDICATION
     Dosage: UNK
     Route: 065

REACTIONS (2)
  - Hepatitis cholestatic [Recovered/Resolved]
  - Jaundice [Unknown]
